FAERS Safety Report 16119547 (Version 2)
Quarter: 2019Q2

REPORT INFORMATION
  Report Type: Spontaneous
  Country: DE (occurrence: DE)
  Receive Date: 20190326
  Receipt Date: 20190413
  Transmission Date: 20190711
  Serious: Yes (Life-Threatening, Hospitalization, Other)
  Sender: FDA-Public Use
  Company Number: PHHY2019DE067737

PATIENT
  Age: 70 Year
  Sex: Male
  Weight: 125 kg

DRUGS (2)
  1. RAMIPRIL. [Concomitant]
     Active Substance: RAMIPRIL
     Indication: HYPERTENSION
     Dosage: 10 MG, QD (5MG-0-5MG)
     Route: 048
     Dates: start: 2010
  2. METFORMIN [Suspect]
     Active Substance: METFORMIN HYDROCHLORIDE
     Indication: TYPE 2 DIABETES MELLITUS
     Dosage: 2 G, QD (1G-0-1G)
     Route: 048
     Dates: start: 2012, end: 20190224

REACTIONS (24)
  - Cardiac arrest [Not Recovered/Not Resolved]
  - Lactic acidosis [Not Recovered/Not Resolved]
  - Sepsis [Unknown]
  - Bundle branch block left [Unknown]
  - Hypoglycaemia [Unknown]
  - Obesity [Unknown]
  - Acute abdomen [Unknown]
  - Acute kidney injury [Unknown]
  - Endotracheal intubation complication [Unknown]
  - Diarrhoea [Unknown]
  - Pneumonia [Unknown]
  - Arterial occlusive disease [Unknown]
  - Malaise [Unknown]
  - Dyspnoea [Unknown]
  - Tachypnoea [Unknown]
  - Oedema peripheral [Unknown]
  - Syncope [Unknown]
  - Dehydration [Unknown]
  - Fall [Unknown]
  - Vomiting [Unknown]
  - Somnolence [Not Recovered/Not Resolved]
  - Aspiration [Unknown]
  - Restlessness [Unknown]
  - Abdominal pain [Unknown]

NARRATIVE: CASE EVENT DATE: 20190221
